FAERS Safety Report 5030804-6 (Version None)
Quarter: 2006Q2

REPORT INFORMATION
  Report Type: 
  Country: None (occurrence: None)
  Receive Date: 20060614
  Receipt Date: 20060601
  Transmission Date: 20061013
  Serious: Yes (Other)
  Sender: FDA-Public Use
  Company Number: 805#9#2006-00080

PATIENT
  Age: 7 Day
  Sex: Male

DRUGS (12)
  1. ALPROSTADIL [Suspect]
     Indication: HEART DISEASE CONGENITAL
     Dosage: SEE IMAGE
     Route: 041
     Dates: start: 20050723, end: 20050723
  2. ALPROSTADIL [Suspect]
     Indication: HEART DISEASE CONGENITAL
     Dosage: SEE IMAGE
     Route: 041
     Dates: start: 20050722, end: 20050723
  3. ALPROSTADIL [Suspect]
     Indication: HEART DISEASE CONGENITAL
     Dosage: SEE IMAGE
     Route: 041
     Dates: start: 20050723, end: 20050724
  4. DOPAMINE HCL [Concomitant]
  5. DOBUTAMINE HCL [Concomitant]
  6. FUROSEMIDE [Concomitant]
  7. POTASSIUM CANRENOATE [Concomitant]
  8. SODIUM BICARBONATE [Concomitant]
  9. MIDAZOLAM HCL [Concomitant]
  10. VECURONIUM BROMIDE [Concomitant]
  11. CEFOTAX (CEFOTAXIME SODIUM) [Concomitant]
  12. CALCIUM GLUCONATE [Concomitant]

REACTIONS (2)
  - APNOEIC ATTACK [None]
  - SKIN IRRITATION [None]
